FAERS Safety Report 7998708-4 (Version None)
Quarter: 2011Q4

REPORT INFORMATION
  Report Type: 
  Country: None (occurrence: None)
  Receive Date: 20111221
  Receipt Date: 20111219
  Transmission Date: 20120403
  Serious: Yes (Death)
  Sender: FDA-Public Use
  Company Number: VE-PFIZER INC-2011287528

PATIENT
  Age: 82 Year
  Sex: Female

DRUGS (3)
  1. BLOKIUM [Concomitant]
     Route: 048
  2. AMIODARONE HCL [Concomitant]
     Indication: ARRHYTHMIA
     Route: 048
  3. NORVASC [Suspect]
     Indication: HYPERTENSION
     Dosage: 10 MG, 1X/DAY
     Route: 048
     Dates: start: 20100101

REACTIONS (2)
  - THROMBOSIS [None]
  - PANCREATIC NEOPLASM [None]
